FAERS Safety Report 9043490 (Version 1)
Quarter: 2013Q1

REPORT INFORMATION
  Report Type: Report from Study
  Country: US (occurrence: US)
  Receive Date: 20130129
  Receipt Date: 20130129
  Transmission Date: 20140127
  Serious: No
  Sender: FDA-Public Use
  Company Number: US-ABBOTT-12P-163-0911524-00

PATIENT
  Age: 63 None
  Sex: Female

DRUGS (7)
  1. HUMIRA 40 MG/0.8 ML PEN [Suspect]
     Indication: CROHN^S DISEASE
     Route: 058
     Dates: start: 201109
  2. INDERAL [Concomitant]
     Indication: HEART RATE
  3. ZOLOFT [Concomitant]
     Indication: DEPRESSION
  4. PENTASA [Concomitant]
     Indication: CROHN^S DISEASE
  5. CALCIUM [Concomitant]
     Indication: MINERAL SUPPLEMENTATION
  6. VITAMIN D [Concomitant]
     Indication: VITAMIN SUPPLEMENTATION
  7. AMBIEN [Concomitant]
     Indication: SLEEP DISORDER THERAPY

REACTIONS (4)
  - Injection site urticaria [Not Recovered/Not Resolved]
  - Injection site pruritus [Not Recovered/Not Resolved]
  - Injection site erythema [Not Recovered/Not Resolved]
  - Injection site irritation [Not Recovered/Not Resolved]
